FAERS Safety Report 5567834-1 (Version None)
Quarter: 2007Q4

REPORT INFORMATION
  Report Type: 
  Country: None (occurrence: None)
  Receive Date: 20071220
  Receipt Date: 20071211
  Transmission Date: 20080405
  Serious: Yes (Other)
  Sender: FDA-Public Use
  Company Number: PHHO2006BE20216

PATIENT
  Age: 77 Year
  Sex: Female
  Weight: 54 kg

DRUGS (2)
  1. FEMARA [Suspect]
     Indication: BREAST CANCER
     Dosage: UNK, UNK
     Route: 048
     Dates: start: 20060907
  2. RAD001 VS PLACEBO [Suspect]
     Indication: BREAST CANCER
     Dosage: 10 MG, QD
     Route: 048
     Dates: start: 20060907, end: 20061129

REACTIONS (3)
  - DYSPNOEA [None]
  - PNEUMONITIS [None]
  - RALES [None]
